FAERS Safety Report 4683188-7 (Version None)
Quarter: 2005Q2

REPORT INFORMATION
  Report Type: 
  Country: None (occurrence: None)
  Receive Date: 20050602
  Receipt Date: 20050331
  Transmission Date: 20051028
  Serious: No
  Sender: FDA-Public Use
  Company Number: USA050494614

PATIENT
  Age: 28 Year
  Sex: Male

DRUGS (1)
  1. CYMBALTA [Suspect]
     Indication: DEPRESSION
     Dosage: 60 MG DAY
     Dates: start: 20050210, end: 20050323

REACTIONS (4)
  - HEADACHE [None]
  - INSOMNIA [None]
  - NECK PAIN [None]
  - RETCHING [None]
